FAERS Safety Report 6667769-7 (Version None)
Quarter: 2010Q2

REPORT INFORMATION
  Report Type: 
  Country: None (occurrence: None)
  Receive Date: 20100405
  Receipt Date: 20100325
  Transmission Date: 20101027
  Serious: Yes (Hospitalization, Other)
  Sender: FDA-Public Use
  Company Number: US-JNJFOC-20100109419

PATIENT
  Sex: Male
  Weight: 174.64 kg

DRUGS (28)
  1. TOPAMAX [Suspect]
     Indication: OBSESSIVE-COMPULSIVE DISORDER
     Route: 048
  2. TOPAMAX [Suspect]
     Indication: BIPOLAR DISORDER
     Route: 048
  3. TOPAMAX [Suspect]
     Indication: WEIGHT DECREASED
     Route: 048
  4. KEFLEX [Suspect]
     Indication: CELLULITIS
     Route: 065
  5. METFORMIN [Concomitant]
     Route: 065
  6. ALBUTEROL [Concomitant]
     Dosage: 2 PUFFS Q.6 P.R.N
     Route: 065
  7. ZYRTEC [Concomitant]
     Dosage: 10 HS
     Route: 065
  8. NASACORT [Concomitant]
     Dosage: 2 PUFFS Q.A.M
     Route: 065
  9. ADVAIR DISKUS 100/50 [Concomitant]
     Dosage: DOSE: 250/50
     Route: 065
  10. FUROSEMIDE [Concomitant]
     Route: 048
  11. PROZAC [Concomitant]
     Dosage: DOSAGE: Q.A.M
     Route: 065
  12. FERROUS SULFATE TAB [Concomitant]
     Dosage: DOSE: 325 TWO P.O.
     Route: 065
  13. COLACE [Concomitant]
     Dosage: DOSE: 100
     Route: 065
  14. HYDROCODONE [Concomitant]
     Dosage: DOSE: 10/325 ONE TO TWO P.O Q.6.
     Route: 048
  15. PREDNISONE TAB [Concomitant]
     Route: 065
  16. CALCIUM [Concomitant]
     Route: 065
  17. VITAMIN D [Concomitant]
     Route: 065
  18. FLONASE [Concomitant]
     Route: 065
  19. ADVAIR DISKUS 100/50 [Concomitant]
     Dosage: 50/250 ONE PUFF IN ONE DAY
     Route: 065
  20. UNKNOWN MEDICATION [Concomitant]
     Route: 065
  21. RISPERIDONE [Concomitant]
     Dosage: DOSE: 0.5
     Route: 065
  22. PAROXETINE HCL [Concomitant]
     Route: 065
  23. VICODIN [Concomitant]
     Dosage: DOSE: 5/500 P.R.N
     Route: 065
  24. METOPROLOL SUCCINATE [Concomitant]
     Dosage: DOSE: 50 P.O. B.I.D
     Route: 048
  25. VANCOMYCIN [Concomitant]
     Dosage: FOR 8 WEEKS
     Route: 065
  26. OMEPRAZOLE [Concomitant]
     Route: 048
  27. SIMVASTATIN [Concomitant]
     Route: 065
  28. POTASSIUM [Concomitant]
     Route: 065

REACTIONS (9)
  - CELLULITIS [None]
  - DECREASED APPETITE [None]
  - DEHYDRATION [None]
  - ENDOCARDITIS BACTERIAL [None]
  - HYPERSOMNIA [None]
  - HYPOTENSION [None]
  - RENAL FAILURE ACUTE [None]
  - STAPHYLOCOCCAL SEPSIS [None]
  - THERAPEUTIC RESPONSE UNEXPECTED [None]
